FAERS Safety Report 7908042-6 (Version None)
Quarter: 2011Q4

REPORT INFORMATION
  Report Type: 
  Country: None (occurrence: None)
  Receive Date: 20111110
  Receipt Date: 20111107
  Transmission Date: 20120403
  Serious: Yes (Hospitalization)
  Sender: FDA-Public Use
  Company Number: US-BRISTOL-MYERS SQUIBB COMPANY-16076382

PATIENT
  Age: 46 Year
  Sex: Female
  Weight: 85 kg

DRUGS (2)
  1. IPILIMUMAB [Suspect]
     Indication: MALIGNANT MELANOMA
     Dosage: LAST DOSE ON 07SEP2011 (858 MG)
     Route: 042
     Dates: start: 20110629, end: 20110907
  2. DECADRON [Suspect]

REACTIONS (3)
  - OPTIC NERVE DISORDER [None]
  - ADRENAL INSUFFICIENCY [None]
  - HYPOPHYSITIS [None]
